FAERS Safety Report 5067085-3 (Version None)
Quarter: 2006Q3

REPORT INFORMATION
  Report Type: 
  Country: None (occurrence: None)
  Receive Date: 20060727
  Receipt Date: 20060713
  Transmission Date: 20061208
  Serious: Yes (Death)
  Sender: FDA-Public Use
  Company Number: 2006S1006489

PATIENT
  Age: 46 Year
  Sex: Female

DRUGS (2)
  1. CLOZAPINE [Suspect]
     Indication: SCHIZOAFFECTIVE DISORDER
     Dosage: 300 MG; QAM; PO; SEE IMAGE
     Route: 048
     Dates: start: 20060101
  2. CLOZAPINE [Suspect]
     Indication: SCHIZOAFFECTIVE DISORDER
     Dosage: 300 MG; QAM; PO; SEE IMAGE
     Route: 048
     Dates: start: 20060101

REACTIONS (1)
  - NEOPLASM MALIGNANT [None]
